FAERS Safety Report 9269318 (Version 2)
Quarter: 2013Q3

REPORT INFORMATION
  Report Type: Spontaneous
  Country: US (occurrence: US)
  Receive Date: 20130503
  Receipt Date: 20130718
  Transmission Date: 20140515
  Serious: No
  Sender: FDA-Public Use
  Company Number: US-PFIZER INC-2013137526

PATIENT
  Age: 46 Year
  Sex: Female
  Weight: 72.56 kg

DRUGS (7)
  1. NEURONTIN [Suspect]
     Indication: FIBROMYALGIA
     Dosage: 300 MG, 2X/DAY
     Route: 048
  2. GABAPENTIN [Suspect]
     Dosage: UNK
  3. VENLAFAXINE XR [Suspect]
     Dosage: 75 MG, 1X/DAY
     Route: 048
  4. LEVOTHYROXINE SODIUM [Suspect]
     Indication: HYPOTHYROIDISM
     Dosage: 50 UG, 1X/DAY
  5. LEVOTHYROXINE SODIUM [Suspect]
     Indication: THYROID DISORDER
  6. HYDROCHLOROTHIAZIDE [Concomitant]
     Indication: HYPERTENSION
     Dosage: 25 MG, 1X/DAY
  7. BUSPIRONE HYDROCHLORIDE [Concomitant]
     Indication: ANXIETY
     Dosage: 5 MG, 2X/DAY

REACTIONS (3)
  - Hyperhidrosis [Not Recovered/Not Resolved]
  - Abdominal pain [Not Recovered/Not Resolved]
  - Diarrhoea [Not Recovered/Not Resolved]
